FAERS Safety Report 24604335 (Version 4)
Quarter: 2025Q1

REPORT INFORMATION
  Report Type: Spontaneous
  Country: US (occurrence: US)
  Receive Date: 20241111
  Receipt Date: 20250113
  Transmission Date: 20250409
  Serious: No
  Sender: PFIZER
  Company Number: US-PFIZER INC-202400296999

PATIENT
  Age: 72 Year
  Sex: Female
  Weight: 61.69 kg

DRUGS (2)
  1. PAXLOVID [Suspect]
     Active Substance: NIRMATRELVIR\RITONAVIR
     Indication: COVID-19 treatment
     Dosage: [NIRMATRELVIR 300 MG]/[RITONAVIR 100 MG]; 2X/DAY
     Route: 048
     Dates: start: 20241031, end: 20241104
  2. METHOTREXATE [Concomitant]
     Active Substance: METHOTREXATE
     Indication: Arthritis reactive
     Dosage: 10 MG, WEEKLY (LAST DOSE 24OCT2024)
     Route: 058

REACTIONS (3)
  - Disease recurrence [Recovered/Resolved]
  - COVID-19 [Recovered/Resolved]
  - Sinusitis bacterial [Recovered/Resolved]

NARRATIVE: CASE EVENT DATE: 20241106
